FAERS Safety Report 4980112-4 (Version None)
Quarter: 2006Q2

REPORT INFORMATION
  Report Type: 
  Country: None (occurrence: None)
  Receive Date: 20060421
  Receipt Date: 20050928
  Transmission Date: 20061013
  Serious: Yes (Hospitalization, Disabling)
  Sender: FDA-Public Use
  Company Number: US-MERCK-0509USA04361

PATIENT
  Age: 73 Year
  Sex: Female
  Weight: 75 kg

DRUGS (3)
  1. VIOXX [Suspect]
     Indication: ARTHRITIS
     Route: 048
     Dates: start: 20000615, end: 20001223
  2. ASPIRIN [Concomitant]
     Route: 048
  3. PERSANTINE [Concomitant]
     Route: 048

REACTIONS (9)
  - CARDIOVASCULAR DISORDER [None]
  - CEREBROVASCULAR ACCIDENT [None]
  - COUGH [None]
  - FATIGUE [None]
  - GASTROOESOPHAGEAL REFLUX DISEASE [None]
  - HYPERLIPIDAEMIA [None]
  - IRRITABLE BOWEL SYNDROME [None]
  - MALAISE [None]
  - OSTEOARTHRITIS [None]
